FAERS Safety Report 4589681-X (Version None)
Quarter: 2005Q1

REPORT INFORMATION
  Report Type: 
  Country: None (occurrence: None)
  Receive Date: 20050216
  Receipt Date: 20050208
  Transmission Date: 20050727
  Serious: Yes (Hospitalization)
  Sender: FDA-Public Use
  Company Number: HQWYE166508FEB05

PATIENT
  Age: 2 Month
  Sex: Male

DRUGS (2)
  1. PROPRANOLOL HYDROCHLORIDE [Suspect]
     Indication: CONDUCTION DISORDER
     Dosage: 10 MG 1X PER 1 DAY ORAL
     Route: 048
     Dates: start: 20041101
  2. MOTILIUM [Suspect]
     Indication: INTESTINAL FUNCTIONAL DISORDER
     Dosage: 0.5 MG 3X PER 1 DAY ORAL
     Route: 048
     Dates: start: 20041201, end: 20041230

REACTIONS (1)
  - ELECTROCARDIOGRAM QT PROLONGED [None]
